FAERS Safety Report 9147353 (Version 1)
Quarter: 2013Q1

REPORT INFORMATION
  Report Type: Spontaneous
  Country: FR (occurrence: None)
  Receive Date: 20130226
  Receipt Date: 20130226
  Transmission Date: 20140127
  Serious: Yes (Death)
  Sender: FDA-Public Use
  Company Number: 2012-544

PATIENT
  Age: 81 Year
  Sex: Male

DRUGS (10)
  1. PRIALT [Suspect]
     Indication: BRAIN STEM ISCHAEMIA
     Dosage: 0.05  MCG,  ONCE/HOUR,  INTRATHECAL?01/14/2010  TO  01/27/2010
     Route: 037
     Dates: start: 20100114, end: 20100127
  2. PRIALT [Suspect]
     Indication: PAIN
     Dosage: 0.05  MCG,  ONCE/HOUR,  INTRATHECAL?01/14/2010  TO  01/27/2010
     Route: 037
     Dates: start: 20100114, end: 20100127
  3. NEURONTIN (GABAPENTIN) [Concomitant]
  4. LIORESAL (BACLOFEN) [Concomitant]
  5. XATRAL XL (ALFUZOSIN HYDROCHLORIDE) [Concomitant]
  6. MONOTIDIEM (DILTIAZEM HYDROCHLORIDE) [Concomitant]
  7. COKENZEN (CANDESARTAN CILEXETIL,  HYDROCHLOROTHIAZIDE) [Concomitant]
  8. DAFALGAN (PARACETAMOL) [Concomitant]
  9. TEMESTA (LORAZEPAM) [Concomitant]
  10. RIVOTRI (CLONAZEPAM) [Concomitant]

REACTIONS (2)
  - Completed suicide [None]
  - Drug ineffective [None]
